FAERS Safety Report 23207122 (Version 1)
Quarter: 2023Q4

REPORT INFORMATION
  Report Type: Spontaneous
  Country: RO (occurrence: RO)
  Receive Date: 20231120
  Receipt Date: 20231120
  Transmission Date: 20240110
  Serious: Yes (Hospitalization)
  Sender: FDA-Public Use
  Company Number: RO-ELI_LILLY_AND_COMPANY-RO202311008078

PATIENT
  Age: 35 Year
  Sex: Male

DRUGS (1)
  1. TALTZ [Suspect]
     Active Substance: IXEKIZUMAB
     Indication: Psoriasis
     Dosage: UNK, ONE EVERY FOUR WEEKS
     Route: 065

REACTIONS (1)
  - Myeloid leukaemia [Unknown]

NARRATIVE: CASE EVENT DATE: 20230727
